FAERS Safety Report 22011396 (Version 1)
Quarter: 2023Q1

REPORT INFORMATION
  Report Type: Report from Study
  Country: BR (occurrence: BR)
  Receive Date: 20230220
  Receipt Date: 20230220
  Transmission Date: 20230417
  Serious: Yes (Other)
  Sender: FDA-Public Use
  Company Number: BR-CELLTRION INC.-2023BR003573

PATIENT

DRUGS (2)
  1. TRUXIMA [Suspect]
     Active Substance: RITUXIMAB-ABBS
     Indication: Systemic lupus erythematosus
     Dosage: 2 AMPOULES, AFTER 15 DAYS WILL REPEAT THE PROCESS
     Route: 042
  2. PREDNISONE [Suspect]
     Active Substance: PREDNISONE
     Indication: Systemic lupus erythematosus
     Dosage: 1 CAPSULE PER DAY, START: 2 YEARS
     Route: 048

REACTIONS (2)
  - Systemic lupus erythematosus [Unknown]
  - Off label use [Unknown]
